FAERS Safety Report 6905831-1 (Version None)
Quarter: 2010Q3

REPORT INFORMATION
  Report Type: 
  Country: None (occurrence: None)
  Receive Date: 20100802
  Receipt Date: 20100802
  Transmission Date: 20110219
  Serious: Yes (Life-Threatening, Disabling)
  Sender: FDA-Public Use
  Company Number: None

PATIENT
  Sex: Female
  Weight: 68.9467 kg

DRUGS (2)
  1. RAMIPRIL [Suspect]
     Indication: CARDIAC DISORDER
     Dosage: 1 TABLET DAILY
     Dates: start: 20100717
  2. RAMIPRIL [Suspect]
     Indication: CARDIAC DISORDER
     Dosage: 1 TABLET DAILY
     Dates: start: 20100718

REACTIONS (14)
  - ARTHRALGIA [None]
  - DECREASED APPETITE [None]
  - DIARRHOEA [None]
  - DIPLOPIA [None]
  - DIZZINESS [None]
  - DYSPNOEA [None]
  - HEADACHE [None]
  - MALAISE [None]
  - NAUSEA [None]
  - RENAL DISORDER [None]
  - RENAL FAILURE [None]
  - TINNITUS [None]
  - VISION BLURRED [None]
  - VOMITING [None]
